FAERS Safety Report 7798851-9 (Version None)
Quarter: 2011Q4

REPORT INFORMATION
  Report Type: 
  Country: None (occurrence: None)
  Receive Date: 20111006
  Receipt Date: 20110928
  Transmission Date: 20120403
  Serious: Yes (Other)
  Sender: FDA-Public Use
  Company Number: US-JNJFOC-20110904418

PATIENT
  Sex: Female
  Weight: 71.22 kg

DRUGS (8)
  1. FENTANYL [Suspect]
     Route: 062
     Dates: start: 20110801
  2. FENTANYL [Suspect]
     Indication: PAIN
     Dosage: 100+ 25 MG PATCH
     Route: 062
     Dates: start: 20110801, end: 20110801
  3. DIAZEPAM [Suspect]
     Indication: DEPRESSION
     Dosage: AS NEEDED
     Route: 048
     Dates: end: 20110801
  4. DIAZEPAM [Suspect]
     Indication: ANXIETY
     Dosage: AS NEEDED
     Route: 048
     Dates: end: 20110801
  5. CHLORDIAZEPOXIDE HCL [Concomitant]
     Indication: POST-TRAUMATIC STRESS DISORDER
     Route: 065
  6. FENTANYL-100 [Suspect]
     Indication: PRODUCT USED FOR UNKNOWN INDICATION
     Route: 062
     Dates: end: 20110801
  7. SOMA [Suspect]
     Indication: MUSCLE RELAXANT THERAPY
     Dosage: AS NEEDED
     Route: 048
     Dates: end: 20110801
  8. HYDROCODONE BITARTRATE [Suspect]
     Indication: PAIN
     Dosage: 10 MG/325 MG AS NEEDED
     Route: 048
     Dates: end: 20110801

REACTIONS (9)
  - GAIT DISTURBANCE [None]
  - WEIGHT DECREASED [None]
  - INAPPROPRIATE SCHEDULE OF DRUG ADMINISTRATION [None]
  - DRUG DETOXIFICATION [None]
  - TREMOR [None]
  - WITHDRAWAL SYNDROME [None]
  - PARAESTHESIA [None]
  - PRODUCT PACKAGING ISSUE [None]
  - TREATMENT NONCOMPLIANCE [None]
